FAERS Safety Report 10576703 (Version 3)
Quarter: 2015Q1

REPORT INFORMATION
  Report Type: Report from Study
  Country: IE (occurrence: IE)
  Receive Date: 20141111
  Receipt Date: 20150220
  Transmission Date: 20150720
  Serious: Yes (Hospitalization, Other)
  Sender: FDA-Public Use
  Company Number: IE-BRISTOL-MYERS SQUIBB COMPANY-21360425

PATIENT
  Sex: Male

DRUGS (1)
  1. IPILIMUMAB [Suspect]
     Active Substance: IPILIMUMAB
     Dosage: UNK
     Route: 042
     Dates: start: 20140814

REACTIONS (6)
  - Decreased appetite [Unknown]
  - Central nervous system lesion [Unknown]
  - Frequent bowel movements [Unknown]
  - Dyspnoea [Unknown]
  - Dehydration [Unknown]
  - Pituitary enlargement [Unknown]
